FAERS Safety Report 4348938-8 (Version None)
Quarter: 2004Q2

REPORT INFORMATION
  Report Type: 
  Country: None (occurrence: None)
  Receive Date: 20040423
  Receipt Date: 20040419
  Transmission Date: 20050107
  Serious: Yes (Disabling)
  Sender: FDA-Public Use
  Company Number: TUK2004A00034

PATIENT
  Age: 68 Year
  Sex: Male

DRUGS (9)
  1. ACTOS [Suspect]
     Indication: DIABETES MELLITUS NON-INSULIN-DEPENDENT
     Dosage: 15 + 30 MG ORAL
     Route: 048
     Dates: start: 20031101, end: 20040101
  2. ACTOS [Suspect]
     Indication: DIABETES MELLITUS NON-INSULIN-DEPENDENT
     Dosage: 15 + 30 MG ORAL
     Route: 048
     Dates: start: 20040101
  3. OMEPRAZOLE [Concomitant]
  4. SUSCARD (GLYCERYL TRINITRATE) [Concomitant]
  5. AMLODIPINE [Concomitant]
  6. DILTIAZEM [Concomitant]
  7. METOPROLOL(METOPROLOL) [Concomitant]
  8. NICORANDIL(NICORANDIL) [Concomitant]
  9. SIMVASTATIN [Concomitant]

REACTIONS (1)
  - HYPERHIDROSIS [None]
